FAERS Safety Report 10110679 (Version 1)
Quarter: 2014Q2

REPORT INFORMATION
  Report Type: Spontaneous
  Country: US (occurrence: None)
  Receive Date: 20140424
  Receipt Date: 20140424
  Transmission Date: 20141212
  Serious: Yes (Life-Threatening)
  Sender: FDA-Public Use
  Company Number: None

PATIENT
  Age: 21 Year
  Sex: Female
  Weight: 77.11 kg

DRUGS (1)
  1. KARIVA [Suspect]
     Indication: CONTRACEPTION
     Dosage: 28 PILLS/MONTH ONCE DAILY TAKEN BY MOUTH
     Route: 048
     Dates: start: 20140401, end: 20140423

REACTIONS (5)
  - Paranoia [None]
  - Sleep disorder [None]
  - Sleep terror [None]
  - Fear [None]
  - Abnormal dreams [None]
